FAERS Safety Report 4930327-6 (Version None)
Quarter: 2006Q1

REPORT INFORMATION
  Report Type: 
  Country: None (occurrence: None)
  Receive Date: 20060302
  Receipt Date: 20060221
  Transmission Date: 20060701
  Serious: Yes (Death)
  Sender: FDA-Public Use
  Company Number: IE-JNJFOC-20060205071

PATIENT
  Age: 77 Year
  Sex: Male

DRUGS (3)
  1. RISPERDAL [Suspect]
     Route: 065
  2. RISPERDAL [Suspect]
     Dosage: REPORTED AS 'LOW DOSES'
     Route: 065
  3. ANALGESICS [Concomitant]

REACTIONS (1)
  - MYOCARDIAL INFARCTION [None]
